FAERS Safety Report 5123465-9 (Version None)
Quarter: 2006Q4

REPORT INFORMATION
  Report Type: 
  Country: None (occurrence: None)
  Receive Date: 20061009
  Receipt Date: 20060929
  Transmission Date: 20070319
  Serious: Yes (Life-Threatening)
  Sender: FDA-Public Use
  Company Number: DE-BOEHRINGER INGELHEIM PHARMACEUTICALS, INC.-2006-DE-05217DE

PATIENT
  Sex: Male
  Weight: 87.6 kg

DRUGS (1)
  1. SPIRIVA [Suspect]
     Indication: CHRONIC OBSTRUCTIVE PULMONARY DISEASE
     Route: 055
     Dates: start: 20060926, end: 20060927

REACTIONS (4)
  - BLOOD PRESSURE INCREASED [None]
  - HYPERHIDROSIS [None]
  - MALAISE [None]
  - TACHYCARDIA [None]
